FAERS Safety Report 19918143 (Version 1)
Quarter: 2021Q4

REPORT INFORMATION
  Report Type: Spontaneous
  Country: US (occurrence: US)
  Receive Date: 20211005
  Receipt Date: 20211005
  Transmission Date: 20220303
  Serious: Yes (Other)
  Sender: FDA-Public Use
  Company Number: None

PATIENT
  Age: 27 Year
  Sex: Female
  Weight: 54 kg

DRUGS (2)
  1. MONTELUKAST [Suspect]
     Active Substance: MONTELUKAST SODIUM
     Indication: Pneumonia
     Dosage: ?          QUANTITY:30 TABLET(S);
     Route: 048
     Dates: start: 20210924, end: 20211005
  2. AUROVELA FE 1/20 [Concomitant]
     Active Substance: ETHINYL ESTRADIOL\NORETHINDRONE ACETATE

REACTIONS (7)
  - Agitation [None]
  - Frustration tolerance decreased [None]
  - Anger [None]
  - Slow speech [None]
  - Poverty of speech [None]
  - Irritability [None]
  - Feeling abnormal [None]

NARRATIVE: CASE EVENT DATE: 20210924
